FAERS Safety Report 6905819-0 (Version None)
Quarter: 2010Q3

REPORT INFORMATION
  Report Type: 
  Country: None (occurrence: None)
  Receive Date: 20100708
  Receipt Date: 20090519
  Transmission Date: 20110219
  Serious: Yes (Other)
  Sender: FDA-Public Use
  Company Number: 2009205405

PATIENT
  Sex: Male
  Weight: 95.7 kg

DRUGS (12)
  1. CHANTIX [Suspect]
     Indication: SMOKING CESSATION THERAPY
     Dosage: 1 MG, 2X/DAY DAILY, ORAL
     Route: 048
     Dates: start: 20080827, end: 20081114
  2. IBUPROFEN [Concomitant]
  3. ASPIRIN [Concomitant]
  4. OMEPRAZOLE [Concomitant]
  5. TEMAZEPAM [Concomitant]
  6. CYCLOBENZAPRINE [Concomitant]
  7. TRAMADOL HCL [Concomitant]
  8. ATRIPLA [Concomitant]
  9. LORATADINE [Concomitant]
  10. AZMACORT [Concomitant]
  11. ALBUTEROL [Concomitant]
  12. COMBIVENT [Concomitant]

REACTIONS (6)
  - ABNORMAL DREAMS [None]
  - AGITATION [None]
  - PALPITATIONS [None]
  - PRESYNCOPE [None]
  - VENTRICULAR EXTRASYSTOLES [None]
  - VIOLENCE-RELATED SYMPTOM [None]
